FAERS Safety Report 13607142 (Version 1)
Quarter: 2017Q2

REPORT INFORMATION
  Report Type: Report from Study
  Country: US (occurrence: US)
  Receive Date: 20170602
  Receipt Date: 20170602
  Transmission Date: 20170830
  Serious: Yes (Other)
  Sender: FDA-Public Use
  Company Number: US-ROCHE-1937795

PATIENT
  Age: 11 Year
  Sex: Male

DRUGS (8)
  1. PHENERGAN DM [Concomitant]
     Active Substance: DEXTROMETHORPHAN HYDROBROMIDE\PROMETHAZINE HYDROCHLORIDE
  2. NUTROPIN AQ [Suspect]
     Active Substance: SOMATROPIN
     Route: 058
     Dates: start: 20110617
  3. PREDNISONE. [Concomitant]
     Active Substance: PREDNISONE
     Route: 048
  4. ZITHROMAX [Concomitant]
     Active Substance: AZITHROMYCIN DIHYDRATE
     Indication: INFECTION
     Dosage: 2 TABS FIRST DAY THEN 1 TAB TILL COMPLETE
     Route: 048
  5. VENTOLIN [Concomitant]
     Active Substance: ALBUTEROL SULFATE
  6. GUAIFENESIN. [Concomitant]
     Active Substance: GUAIFENESIN
     Indication: COUGH
     Dosage: ONGOING:YES
     Route: 048
  7. NUTROPIN AQ [Suspect]
     Active Substance: SOMATROPIN
     Indication: BODY HEIGHT BELOW NORMAL
     Route: 058
     Dates: start: 2010
  8. LUPRON [Concomitant]
     Active Substance: LEUPROLIDE ACETATE
     Dosage: IN EVERY 3 MONTHS
     Route: 030
     Dates: end: 20140530

REACTIONS (11)
  - Breast tenderness [Recovering/Resolving]
  - Constipation [Unknown]
  - Haemangioma [Unknown]
  - Hypothalamo-pituitary disorder [Not Recovered/Not Resolved]
  - Nuclear magnetic resonance imaging brain abnormal [Not Recovered/Not Resolved]
  - Thyroid neoplasm [Recovered/Resolved]
  - Epiphyses premature fusion [Not Recovered/Not Resolved]
  - Blood sodium increased [Unknown]
  - Insulin-like growth factor increased [Unknown]
  - Breast induration [Recovering/Resolving]
  - Pituitary tumour benign [Recovered/Resolved]

NARRATIVE: CASE EVENT DATE: 20121211
